FAERS Safety Report 19988255 (Version 1)
Quarter: 2021Q4

REPORT INFORMATION
  Report Type: 
  Country: None (occurrence: None)
  Receive Date: 20211022
  Receipt Date: 20211022
  Transmission Date: 20220303
  Serious: Yes (Hospitalization, Other)
  Sender: FDA-Public Use
  Company Number: None

PATIENT
  Age: 9 Month
  Sex: Male

DRUGS (1)
  1. FENTANYL CITRATE [Suspect]
     Active Substance: FENTANYL CITRATE

REACTIONS (15)
  - Brain oedema [None]
  - Hydrocephalus [None]
  - Ventriculo-peritoneal shunt [None]
  - Gastrointestinal tube insertion [None]
  - Bradycardia [None]
  - Hypoglycaemia [None]
  - Toxicity to various agents [None]
  - Craniotomy [None]
  - Hypoxia [None]
  - Hypothermia [None]
  - Lethargy [None]
  - Encephalomalacia [None]
  - Apraxia [None]
  - Dysmetria [None]
  - Cerebrovascular accident [None]
